FAERS Safety Report 7350154 (Version 3)
Quarter: 2013Q3

REPORT INFORMATION
  Report Type: Spontaneous
  Country: US (occurrence: US)
  Receive Date: 20100409
  Receipt Date: 20130702
  Transmission Date: 20140515
  Serious: Yes (Hospitalization, Other)
  Sender: FDA-Public Use
  Company Number: US-JNJFOC-20100400681

PATIENT
  Age: 54 Year
  Sex: Male
  Weight: 106.14 kg

DRUGS (15)
  1. RISPERDAL [Suspect]
     Indication: BIPOLAR DISORDER
     Dosage: 1-3MG/DAY
     Route: 048
     Dates: start: 200401
  2. RISPERDAL [Suspect]
     Indication: BIPOLAR DISORDER
     Route: 048
     Dates: start: 2003
  3. PLAVIX [Concomitant]
     Indication: CORONARY ARTERY DISEASE
     Dosage: SINCE CATH STENT
     Dates: start: 2009
  4. TOPROL  XL [Concomitant]
     Indication: CORONARY ARTERY DISEASE
     Dates: start: 2009
  5. PRAVACHOL [Concomitant]
     Indication: HYPERCHOLESTEROLAEMIA
     Dates: start: 2009
  6. PRAVACHOL [Concomitant]
     Indication: HYPERCHOLESTEROLAEMIA
     Dates: start: 2007
  7. ZOLOFT [Concomitant]
     Indication: MOOD SWINGS
     Dates: start: 2007
  8. ZOLOFT [Concomitant]
     Indication: DEPRESSION
     Dates: start: 2007
  9. ZETIA [Concomitant]
     Indication: HYPERCHOLESTEROLAEMIA
     Dates: start: 2009
  10. LEVOTHYROXINE [Concomitant]
     Indication: HYPOTHYROIDISM
     Dates: start: 2003
  11. LEVOTHYROXINE [Concomitant]
     Indication: HYPOTHYROIDISM
     Dates: start: 2007
  12. GABAPENTIN [Concomitant]
     Indication: MOOD SWINGS
     Route: 065
     Dates: start: 2001
  13. LOVAZA [Concomitant]
     Indication: CARDIAC DISORDER
     Dosage: RECENT TGM IV
     Route: 065
     Dates: start: 2010
  14. TRAZODONE [Concomitant]
     Indication: SLEEP DISORDER
     Route: 065
     Dates: start: 2004
  15. UROXATRAL [Concomitant]
     Route: 065
     Dates: start: 2008

REACTIONS (8)
  - Diabetes mellitus [Not Recovered/Not Resolved]
  - Coronary artery disease [Not Recovered/Not Resolved]
  - Hypercholesterolaemia [Not Recovered/Not Resolved]
  - Depression [Not Recovered/Not Resolved]
  - Hypothyroidism [Not Recovered/Not Resolved]
  - Microalbuminuria [Not Recovered/Not Resolved]
  - Coronary arterial stent insertion [Recovered/Resolved]
  - Chest pain [Unknown]
